FAERS Safety Report 8775622 (Version 1)
Quarter: 2012Q4

REPORT INFORMATION
  Report Type: 
  Country: US (occurrence: US)
  Receive Date: 20120910
  Receipt Date: 20120910
  Transmission Date: 20130627
  Serious: Yes (Other)
  Sender: FDA-Public Use
  Company Number: US-BRISTOL-MYERS SQUIBB COMPANY-16921744

PATIENT
  Age: 67 Year
  Sex: Female

DRUGS (9)
  1. AVAPRO [Suspect]
     Dosage: dose increased to 300mg
     Dates: start: 2001
  2. LEVEMIR [Concomitant]
  3. HUMALOG [Concomitant]
  4. TOPROL [Concomitant]
  5. ISOSORBIDE [Concomitant]
  6. FUROSEMIDE [Concomitant]
  7. VITAMIN D [Concomitant]
  8. ASPIRIN [Concomitant]
  9. ZOCOR [Concomitant]

REACTIONS (3)
  - Cerebrovascular accident [Unknown]
  - Type 2 diabetes mellitus [Unknown]
  - Protein urine present [Unknown]
